FAERS Safety Report 25149148 (Version 2)
Quarter: 2025Q2

REPORT INFORMATION
  Report Type: Spontaneous
  Country: ES (occurrence: ES)
  Receive Date: 20250402
  Receipt Date: 20250416
  Transmission Date: 20250717
  Serious: Yes (Hospitalization, Other)
  Sender: ALEXION PHARMACEUTICALS
  Company Number: ES-AstraZeneca-CH-00837109A

PATIENT
  Age: 71 Year
  Weight: 81 kg

DRUGS (16)
  1. ULTOMIRIS [Suspect]
     Active Substance: RAVULIZUMAB-CWVZ
     Indication: Myasthenia gravis
  2. LACTULOSE [Concomitant]
     Active Substance: LACTULOSE
     Route: 065
  3. Micralax [Concomitant]
     Route: 065
  4. OMEPRAZOLE [Concomitant]
     Active Substance: OMEPRAZOLE
     Dosage: 20 MILLIGRAM, Q12H
     Route: 065
  5. RIFAXIMIN [Concomitant]
     Active Substance: RIFAXIMIN
     Dosage: 2 TABLET, Q8H
     Route: 065
  6. Aminomix [Concomitant]
     Dosage: 1 SACHET, QD (IN THE MORNING)
     Route: 065
  7. RAMIPRIL [Concomitant]
     Active Substance: RAMIPRIL
     Route: 065
  8. SITAGLIPTIN [Concomitant]
     Active Substance: SITAGLIPTIN
     Dosage: 50 MILLIGRAM, Q12H
     Route: 065
  9. MESTINON [Concomitant]
     Active Substance: PYRIDOSTIGMINE BROMIDE
     Dosage: 1 TABLET, Q4H
     Route: 065
  10. SODIUM BICARBONATE [Concomitant]
     Active Substance: SODIUM BICARBONATE
     Dosage: 500 MILLIGRAM, BID (AT BREAKFAST AND DINNER)
     Route: 065
  11. OCTREOTIDE [Concomitant]
     Active Substance: OCTREOTIDE
     Dosage: 30 MILLIGRAM, QMONTH
  12. EPOETIN DELTA [Concomitant]
     Active Substance: EPOETIN DELTA
     Dosage: 6000 INTERNATIONAL UNIT, Q2W
     Route: 065
  13. PHYTONADIONE [Concomitant]
     Active Substance: PHYTONADIONE
     Route: 065
  14. ACETAMINOPHEN [Concomitant]
     Active Substance: ACETAMINOPHEN
     Dosage: 1 GRAM, Q8H SP
     Route: 065
  15. METAMIZOL [Concomitant]
     Active Substance: METAMIZOLE SODIUM
     Dosage: 575 MILLIGRAM, Q8H SP
     Route: 065
  16. BIMATOPROST\TIMOLOL [Concomitant]
     Active Substance: BIMATOPROST\TIMOLOL
     Route: 065

REACTIONS (3)
  - Myasthenia gravis crisis [Recovered/Resolved]
  - Pneumonia aspiration [Unknown]
  - Influenza [Unknown]
